FAERS Safety Report 4667063-X (Version None)
Quarter: 2005Q2

REPORT INFORMATION
  Report Type: 
  Country: None (occurrence: None)
  Receive Date: 20050520
  Receipt Date: 20050131
  Transmission Date: 20051028
  Serious: Yes (Other)
  Sender: FDA-Public Use
  Company Number: PHEH2005US01514

PATIENT
  Age: 58 Year
  Sex: Male
  Weight: 63 kg

DRUGS (2)
  1. AREDIA [Suspect]
     Indication: MULTIPLE MYELOMA
     Dosage: 90 MG, QMO
     Route: 042
     Dates: start: 20030101
  2. VELCADE [Concomitant]

REACTIONS (3)
  - OSTEONECROSIS [None]
  - SINUS DISORDER [None]
  - TENDERNESS [None]
